FAERS Safety Report 16238432 (Version 1)
Quarter: 2019Q2

REPORT INFORMATION
  Report Type: Spontaneous
  Country: GB (occurrence: GB)
  Receive Date: 20190425
  Receipt Date: 20190425
  Transmission Date: 20190711
  Serious: Yes (Disabling)
  Sender: FDA-Public Use
  Company Number: PHHY2019GB091580

PATIENT
  Age: 71 Year
  Sex: Female
  Weight: 70 kg

DRUGS (1)
  1. LETROZOLE. [Suspect]
     Active Substance: LETROZOLE
     Indication: PRODUCT USED FOR UNKNOWN INDICATION
     Dosage: 2.5 MG, QD
     Route: 065
     Dates: start: 20181015

REACTIONS (2)
  - Joint stiffness [Unknown]
  - Asthenia [Unknown]
